FAERS Safety Report 5899554-8 (Version None)
Quarter: 2008Q3

REPORT INFORMATION
  Report Type: 
  Country: None (occurrence: None)
  Receive Date: 20080926
  Receipt Date: 20080918
  Transmission Date: 20090109
  Serious: Yes (Other)
  Sender: FDA-Public Use
  Company Number: PHHY2008AT21750

PATIENT

DRUGS (2)
  1. EXJADE [Suspect]
     Indication: IRON OVERLOAD
  2. EXJADE [Suspect]
     Indication: THALASSAEMIA BETA

REACTIONS (2)
  - CAVERNOUS SINUS THROMBOSIS [None]
  - EPILEPSY [None]
